FAERS Safety Report 6334203-6 (Version None)
Quarter: 2009Q3

REPORT INFORMATION
  Report Type: 
  Country: None (occurrence: None)
  Receive Date: 20090829
  Receipt Date: 20090728
  Transmission Date: 20100115
  Serious: No
  Sender: FDA-Public Use
  Company Number: US-ABBOTT-09P-163-0588243-00

PATIENT
  Sex: Female

DRUGS (4)
  1. SIMCOR [Suspect]
     Indication: BLOOD TRIGLYCERIDES INCREASED
     Dosage: 500/20MG
     Dates: start: 20090727
  2. EVISTA [Concomitant]
     Indication: DRUG USE FOR UNKNOWN INDICATION
  3. ACTOS [Concomitant]
     Indication: DRUG USE FOR UNKNOWN INDICATION
  4. MICARDIS [Concomitant]
     Indication: DRUG USE FOR UNKNOWN INDICATION

REACTIONS (1)
  - FLUSHING [None]
